FAERS Safety Report 9207183 (Version 2)
Quarter: 2013Q4

REPORT INFORMATION
  Report Type: Spontaneous
  Country: US (occurrence: US)
  Receive Date: 20130403
  Receipt Date: 20131216
  Transmission Date: 20140711
  Serious: Yes (Hospitalization, Other)
  Sender: FDA-Public Use
  Company Number: US-BAYER-2013-040022

PATIENT
  Age: 17 Year
  Sex: Female

DRUGS (3)
  1. YAZ [Suspect]
     Dosage: UNK
     Dates: start: 200204, end: 200909
  2. YASMIN [Suspect]
     Dosage: UNK
     Dates: start: 200204, end: 200909
  3. VICODIN [Concomitant]
     Indication: PAIN
     Dosage: ONE TO TWO TABLETS EVERY FOUR TO SIX HOURS AS NEEDED

REACTIONS (7)
  - Cholelithiasis [None]
  - Cholecystitis chronic [None]
  - Injury [None]
  - Pain [None]
  - Anxiety [None]
  - Psychological trauma [None]
  - Emotional distress [None]
